FAERS Safety Report 7002839-5 (Version None)
Quarter: 2010Q3

REPORT INFORMATION
  Report Type: 
  Country: None (occurrence: None)
  Receive Date: 20100920
  Receipt Date: 20100914
  Transmission Date: 20110219
  Serious: Yes (Hospitalization)
  Sender: FDA-Public Use
  Company Number: DE-NAPPMUNDI-DEU-2010-0006561

PATIENT
  Age: 62 Year
  Sex: Female

DRUGS (3)
  1. OXYGESIC [Suspect]
     Indication: PAIN
     Dosage: 40 MG, TID
     Route: 048
     Dates: start: 20100801
  2. OXYGESIC [Suspect]
     Dosage: 20 MG, TID
     Route: 048
     Dates: start: 20100601, end: 20100801
  3. OXYCODON [Suspect]
     Indication: PAIN
     Dosage: UNK
     Dates: start: 20100801

REACTIONS (5)
  - BLOOD PRESSURE FLUCTUATION [None]
  - FLUSHING [None]
  - HOT FLUSH [None]
  - NAUSEA [None]
  - VOMITING [None]
